FAERS Safety Report 6238148-1 (Version None)
Quarter: 2009Q2

REPORT INFORMATION
  Report Type: 
  Country: None (occurrence: None)
  Receive Date: 20090622
  Receipt Date: 20090616
  Transmission Date: 20091009
  Serious: Yes (Death)
  Sender: FDA-Public Use
  Company Number: JP-JNJFOC-20090503112

PATIENT
  Sex: Male
  Weight: 48 kg

DRUGS (28)
  1. DUROTEP MT PATCH [Suspect]
     Route: 062
  2. DUROTEP MT PATCH [Suspect]
     Indication: CANCER PAIN
     Route: 062
  3. DOPAMINE HYDROCHLORIDE [Concomitant]
     Indication: SHOCK
     Route: 042
  4. FULCALIQ 1 [Concomitant]
     Indication: FLUID REPLACEMENT
     Route: 042
  5. DEXART [Concomitant]
     Route: 042
  6. DEXART [Concomitant]
     Indication: OESOPHAGEAL CARCINOMA
     Route: 042
  7. ISOTONIC SODIUM CHLORIDE [Concomitant]
     Indication: MEDICATION DILUTION
     Route: 042
  8. LASIX [Concomitant]
     Route: 042
  9. LASIX [Concomitant]
     Indication: OEDEMA PERIPHERAL
     Route: 042
  10. MANGANESE CHLORIDE-ZINC SULFATE COMBINED DRUG [Concomitant]
     Indication: FLUID REPLACEMENT
     Route: 042
  11. NORVASC [Concomitant]
     Route: 048
  12. NORVASC [Concomitant]
     Indication: HYPERTENSION
     Route: 048
  13. TAPENTADOL HYDROCHLORIDE [Concomitant]
     Indication: CANCER PAIN
     Route: 048
  14. LOSARTAN POTASSIUM [Concomitant]
     Route: 048
  15. LOSARTAN POTASSIUM [Concomitant]
     Indication: HYPERTENSION
     Route: 048
  16. MOBIC [Concomitant]
     Indication: CANCER PAIN
     Route: 048
  17. MARZULENE-S [Concomitant]
     Indication: GASTRITIS PROPHYLAXIS
     Route: 048
  18. LAC-B [Concomitant]
     Indication: CONSTIPATION
     Route: 048
  19. TELEMINSOFT [Concomitant]
     Indication: CONSTIPATION
     Dosage: P.R.N (AS NEEDED)
     Route: 054
  20. ZOLPIDEM TARTRATE [Concomitant]
     Indication: INSOMNIA
     Route: 048
  21. LASIX [Concomitant]
     Route: 048
  22. OXYGEN [Concomitant]
     Indication: METASTASES TO LUNG
     Dosage: 1L-8L/MIN
  23. MEROPENEM TRIHYDRATE [Concomitant]
     Route: 042
  24. MEROPENEM TRIHYDRATE [Concomitant]
     Indication: METASTASES TO LUNG
     Route: 042
  25. PRIMPERAN [Concomitant]
     Indication: NAUSEA
     Route: 042
  26. MIXED AMINO ACID CARBOHYDRATE ELECTROLYTE VITAMIN COMBINED DRUG [Concomitant]
     Indication: METASTASES TO LUNG
     Route: 042
  27. SAXIZON [Concomitant]
     Indication: METASTASES TO LUNG
     Route: 042
  28. NAUZELIN [Concomitant]
     Indication: NAUSEA
     Route: 054

REACTIONS (8)
  - ASPIRATION [None]
  - CONSTIPATION [None]
  - DYSPNOEA [None]
  - LYMPHANGIOSIS CARCINOMATOSA [None]
  - MALAISE [None]
  - METASTASES TO LUNG [None]
  - RESPIRATORY ARREST [None]
  - VOMITING [None]
